FAERS Safety Report 26074334 (Version 2)
Quarter: 2025Q4

REPORT INFORMATION
  Report Type: Report from Study
  Country: EU (occurrence: EU)
  Receive Date: 20251121
  Receipt Date: 20251222
  Transmission Date: 20260118
  Serious: Yes (Hospitalization)
  Sender: DAIICHI
  Company Number: EU-ASTRAZENECA-202511GLO010855DE

PATIENT
  Sex: Female

DRUGS (2)
  1. ENHERTU [Suspect]
     Active Substance: FAM-TRASTUZUMAB DERUXTECAN-NXKI
     Indication: HER2 positive breast cancer
     Dosage: 5.4 MG/KG
     Route: 042
  2. ZOPICLONE [Concomitant]
     Active Substance: ZOPICLONE
     Indication: Product used for unknown indication
     Dosage: 7.5 MG, QD
     Route: 048
     Dates: start: 20250816

REACTIONS (1)
  - Impaired healing [Recovered/Resolved]

NARRATIVE: CASE EVENT DATE: 20251111
